FAERS Safety Report 5232147-4 (Version None)
Quarter: 2007Q1

REPORT INFORMATION
  Report Type: 
  Country: None (occurrence: None)
  Receive Date: 20061201
  Receipt Date: 20061013
  Transmission Date: 20070707
  Serious: No
  Sender: FDA-Public Use
  Company Number: US200607004641

PATIENT
  Age: 40 Year
  Sex: Female

DRUGS (8)
  1. CYMBALTA [Suspect]
     Indication: PAIN
     Dosage: SEE IMAGE
     Dates: start: 20060101, end: 20060101
  2. CYMBALTA [Suspect]
     Indication: PAIN
     Dosage: SEE IMAGE
     Dates: start: 20060101, end: 20060101
  3. CYMBALTA [Suspect]
     Indication: PAIN
     Dosage: SEE IMAGE
     Dates: start: 20060601, end: 20060101
  4. CYMBALTA [Suspect]
     Indication: PAIN
     Dosage: SEE IMAGE
     Dates: start: 20060101
  5. MOBIC [Concomitant]
  6. INSULIN (INSULIN) [Concomitant]
  7. HERBAL PREPARATION [Concomitant]
  8. METHOTREXATE [Concomitant]

REACTIONS (2)
  - BLOOD PRESSURE INCREASED [None]
  - SOMNOLENCE [None]
